FAERS Safety Report 6509583-9 (Version None)
Quarter: 2009Q4

REPORT INFORMATION
  Report Type: 
  Country: None (occurrence: None)
  Receive Date: 20091221
  Receipt Date: 20091221
  Transmission Date: 20100525
  Serious: Yes (Hospitalization)
  Sender: FDA-Public Use
  Company Number: None

PATIENT
  Age: 76 Year
  Sex: Male
  Weight: 91.173 kg

DRUGS (1)
  1. PRIVIGEN [Suspect]
     Dosage: 90GM IV DRIP
     Route: 041
     Dates: start: 20091215, end: 20091215

REACTIONS (5)
  - CHILLS [None]
  - NAUSEA [None]
  - PYREXIA [None]
  - SALIVA DISCOLOURATION [None]
  - VOMITING [None]
